FAERS Safety Report 11103352 (Version 2)
Quarter: 2015Q2

REPORT INFORMATION
  Report Type: Report from Study
  Country: AR (occurrence: AR)
  Receive Date: 20150511
  Receipt Date: 20150528
  Transmission Date: 20150821
  Serious: Yes (Hospitalization)
  Sender: FDA-Public Use
  Company Number: PHHY2015AR056292

PATIENT
  Age: 6 Year
  Sex: Female

DRUGS (2)
  1. EXJADE [Suspect]
     Active Substance: DEFERASIROX
     Indication: CONGENITAL APLASTIC ANAEMIA
     Dosage: 560 MG, QD
     Route: 048
     Dates: start: 2010
  2. METRONIDAZOLE. [Concomitant]
     Active Substance: METRONIDAZOLE
     Indication: PRODUCT USED FOR UNKNOWN INDICATION
     Route: 065

REACTIONS (6)
  - Gastroenteritis [Recovering/Resolving]
  - Hepatomegaly [Unknown]
  - Abdominal pain [Unknown]
  - Serum ferritin increased [Unknown]
  - Transaminases increased [Recovering/Resolving]
  - Blister [Unknown]

NARRATIVE: CASE EVENT DATE: 201504
